FAERS Safety Report 4579643-0 (Version None)
Quarter: 2005Q1

REPORT INFORMATION
  Report Type: 
  Country: None (occurrence: None)
  Receive Date: 20050210
  Receipt Date: 20050125
  Transmission Date: 20050727
  Serious: Yes (Death)
  Sender: FDA-Public Use
  Company Number: 10076

PATIENT
  Sex: Female

DRUGS (6)
  1. METHOTREXATE [Suspect]
     Indication: RHABDOMYOSARCOMA
     Dosage: 10 MG/M2 FORTNIGHTLY IT
     Route: 037
  2. DOXORUBICIN [Suspect]
     Indication: MENINGEAL NEOPLASM
  3. DACARBAZINE [Suspect]
     Indication: RHABDOMYOSARCOMA
  4. VINCRISTINE [Suspect]
     Indication: RHABDOMYOSARCOMA
  5. ACTINOMYCIN D [Suspect]
     Indication: RHABDOMYOSARCOMA
  6. CYCLOPHOSPHAMIDE [Suspect]
     Indication: RHABDOMYOSARCOMA

REACTIONS (2)
  - ANAPLASTIC ASTROCYTOMA [None]
  - TREATMENT RELATED SECONDARY MALIGNANCY [None]
